FAERS Safety Report 5132464-2 (Version None)
Quarter: 2006Q4

REPORT INFORMATION
  Report Type: 
  Country: None (occurrence: None)
  Receive Date: 20061023
  Receipt Date: 20061009
  Transmission Date: 20070319
  Serious: Yes (Hospitalization, Other)
  Sender: FDA-Public Use
  Company Number: PHHO2006AR17035

PATIENT
  Sex: Female

DRUGS (1)
  1. ZELMAC / HTF 919A [Suspect]
     Indication: CONSTIPATION
     Dates: start: 20060601, end: 20060601

REACTIONS (3)
  - ABDOMINAL PAIN [None]
  - DIARRHOEA [None]
  - GALLBLADDER OPERATION [None]
